FAERS Safety Report 20986453 (Version 1)
Quarter: 2022Q2

REPORT INFORMATION
  Report Type: Spontaneous
  Country: US (occurrence: US)
  Receive Date: 20220621
  Receipt Date: 20220621
  Transmission Date: 20220721
  Serious: Yes (Hospitalization, Other)
  Sender: FDA-Public Use
  Company Number: US-BRISTOL-MYERS SQUIBB COMPANY-2022-057019

PATIENT
  Age: 70 Year
  Sex: Male

DRUGS (1)
  1. YERVOY [Suspect]
     Active Substance: IPILIMUMAB
     Indication: Malignant melanoma
     Dosage: DOSE : UNAVAILABLE;     FREQ : EVERY 3 WEEKS
     Route: 065

REACTIONS (6)
  - Asthenia [Unknown]
  - Tremor [Unknown]
  - Urticaria [Unknown]
  - Pruritus [Unknown]
  - Diarrhoea [Unknown]
  - Renal impairment [Unknown]

NARRATIVE: CASE EVENT DATE: 20210101
